FAERS Safety Report 9000327 (Version 1)
Quarter: 2012Q4

REPORT INFORMATION
  Report Type: Spontaneous
  Country: US (occurrence: None)
  Receive Date: 20121221
  Receipt Date: 20121221
  Transmission Date: 20130627
  Serious: Yes (Hospitalization)
  Sender: FDA-Public Use
  Company Number: UTC-026724

PATIENT
  Age: 57 Year
  Sex: Female
  Weight: 63.6 kg

DRUGS (3)
  1. REMODULIN [Suspect]
     Indication: PRIMARY PULMONARY HYPERTENSION
     Dosage: 28.8 UG/KG (0.02 UG/KG, 1 IN 1 MIN), Subcutaneous
     Route: 058
     Dates: start: 20121109
  2. ADCIRCA (TADALAFIL) [Concomitant]
  3. PREDNISONE [Concomitant]

REACTIONS (6)
  - Dyspnoea [None]
  - Sputum discoloured [None]
  - Cough [None]
  - Fatigue [None]
  - Oxygen consumption increased [None]
  - Oxygen saturation decreased [None]
